FAERS Safety Report 6187919-9 (Version None)
Quarter: 2009Q2

REPORT INFORMATION
  Report Type: 
  Country: None (occurrence: None)
  Receive Date: 20090511
  Receipt Date: 20090511
  Transmission Date: 20091009
  Serious: Yes (Hospitalization)
  Sender: FDA-Public Use
  Company Number: None

PATIENT
  Sex: Female
  Weight: 13.5 kg

DRUGS (5)
  1. CYCLOPHOSPHAMIDE [Suspect]
     Dosage: 2394 MG
  2. DOXORUBICIN HYDROCHLORIDE [Suspect]
     Dosage: 42.75 MG
  3. G-CSF (FILGRASTIM, AMGEN) [Suspect]
     Dosage: 66.5 MG
  4. MESNA [Suspect]
     Dosage: 1436.4 MG
  5. VINCRISTINE SULFATE [Suspect]
     Dosage: .87 MG

REACTIONS (9)
  - BLOOD POTASSIUM DECREASED [None]
  - CARDIAC ARREST [None]
  - CARDIAC DISORDER [None]
  - DEHYDRATION [None]
  - DIARRHOEA [None]
  - ELECTROLYTE IMBALANCE [None]
  - GENERAL PHYSICAL HEALTH DETERIORATION [None]
  - NEUTROPENIA [None]
  - SEPTIC SHOCK [None]
